FAERS Safety Report 8652442 (Version 2)
Quarter: 2013Q1

REPORT INFORMATION
  Report Type: Spontaneous
  Country: US (occurrence: US)
  Receive Date: 20120706
  Receipt Date: 20130214
  Transmission Date: 20140127
  Serious: No
  Sender: FDA-Public Use
  Company Number: US-PFIZER INC-2012158518

PATIENT
  Sex: Female

DRUGS (2)
  1. DIFLUCAN [Suspect]
     Indication: CLOSTRIDIUM DIFFICILE INFECTION
     Dosage: UNK
  2. FLAGYL [Suspect]
     Indication: URINARY TRACT INFECTION
     Dosage: UNK

REACTIONS (2)
  - Off label use [Unknown]
  - Drug ineffective for unapproved indication [Unknown]
